FAERS Safety Report 13666034 (Version 1)
Quarter: 2017Q2

REPORT INFORMATION
  Report Type: Spontaneous
  Country: US (occurrence: US)
  Receive Date: 20170619
  Receipt Date: 20170619
  Transmission Date: 20170830
  Serious: No
  Sender: FDA-Public Use
  Company Number: US-ACTELION-A-US2017-155499

PATIENT
  Age: 67 Year
  Sex: Male

DRUGS (1)
  1. VALCHLOR [Suspect]
     Active Substance: MECHLORETHAMINE
     Indication: MYCOSIS FUNGOIDES
     Dosage: UNK , UNK
     Route: 061
     Dates: start: 20141106, end: 20170607

REACTIONS (4)
  - Rash [Unknown]
  - Condition aggravated [Unknown]
  - Application site erosion [Unknown]
  - Urticaria [Unknown]
